FAERS Safety Report 13162926 (Version 1)
Quarter: 2017Q1

REPORT INFORMATION
  Report Type: Spontaneous
  Country: GB (occurrence: GB)
  Receive Date: 20170130
  Receipt Date: 20170130
  Transmission Date: 20170428
  Serious: Yes (Life-Threatening, Hospitalization, Disabling)
  Sender: FDA-Public Use
  Company Number: GB-TEVA-732334ACC

PATIENT
  Age: 60 Year
  Sex: Female
  Weight: 51.71 kg

DRUGS (2)
  1. ACTAVIS UK DOXYCYCLINE [Suspect]
     Active Substance: DOXYCYCLINE
     Indication: LOWER RESPIRATORY TRACT INFECTION
     Route: 048
     Dates: start: 20151102, end: 20151112
  2. CLARITHROMYCIN. [Suspect]
     Active Substance: CLARITHROMYCIN
     Indication: SINUSITIS
     Route: 048
     Dates: start: 20160327, end: 20170104

REACTIONS (1)
  - Wheezing [Recovered/Resolved with Sequelae]
